FAERS Safety Report 4976052-7 (Version None)
Quarter: 2006Q2

REPORT INFORMATION
  Report Type: 
  Country: None (occurrence: None)
  Receive Date: 20060413
  Receipt Date: 20060403
  Transmission Date: 20061013
  Serious: Yes (Death)
  Sender: FDA-Public Use
  Company Number: 06H-087-0306991-00

PATIENT
  Age: 14 Year
  Sex: Female

DRUGS (4)
  1. ETOPOSIDE [Suspect]
     Indication: MEDULLOBLASTOMA
     Dosage: 200-300 MG/M2, 4 TIMES
  2. ETOPOSIDE [Suspect]
     Indication: NEOPLASM RECURRENCE
     Dosage: 200-300 MG/M2, 4 TIMES
  3. MCNU [Suspect]
     Indication: MEDULLOBLASTOMA
     Dosage: 2 TIMES
  4. MCNU [Suspect]
     Indication: NEOPLASM RECURRENCE
     Dosage: 2 TIMES

REACTIONS (7)
  - ACUTE RESPIRATORY DISTRESS SYNDROME [None]
  - DRUG TOXICITY [None]
  - GLIOSIS [None]
  - METASTASES TO CENTRAL NERVOUS SYSTEM [None]
  - METASTASES TO SPINE [None]
  - METASTASES TO THORAX [None]
  - MULTI-ORGAN FAILURE [None]
